FAERS Safety Report 8601414-6 (Version None)
Quarter: 2012Q3

REPORT INFORMATION
  Report Type: 
  Country: None (occurrence: None)
  Receive Date: 20120817
  Receipt Date: 20120815
  Transmission Date: 20120928
  Serious: Yes (Death, Other)
  Sender: FDA-Public Use
  Company Number: PHHY2012HN070835

PATIENT
  Sex: Male

DRUGS (1)
  1. IMATINIB MESYLATE [Suspect]
     Indication: CHRONIC MYELOID LEUKAEMIA
     Dosage: 400 MG, UNK

REACTIONS (8)
  - GASTRIC ADENOMA [None]
  - PYREXIA [None]
  - CHRONIC MYELOID LEUKAEMIA [None]
  - ASTHENIA [None]
  - DIARRHOEA [None]
  - ABDOMINAL PAIN [None]
  - DECREASED APPETITE [None]
  - DEATH [None]
